FAERS Safety Report 14425019 (Version 1)
Quarter: 2018Q1

REPORT INFORMATION
  Report Type: Report from Study
  Country: CH (occurrence: CH)
  Receive Date: 20180123
  Receipt Date: 20180123
  Transmission Date: 20180509
  Serious: Yes (Hospitalization)
  Sender: FDA-Public Use
  Company Number: CH-PFIZER INC-2018025627

PATIENT
  Age: 70 Year
  Sex: Male

DRUGS (7)
  1. SANDIMMUN [Concomitant]
     Active Substance: CYCLOSPORINE
     Dosage: UNK
     Dates: start: 20081211
  2. MYCOPHENOLATE MOFETIL. [Concomitant]
     Active Substance: MYCOPHENOLATE MOFETIL
     Dosage: UNK
     Dates: start: 20081211
  3. ALDACTONE [Suspect]
     Active Substance: SPIRONOLACTONE
     Indication: OEDEMA
  4. CERTICAN [Suspect]
     Active Substance: EVEROLIMUS
     Indication: RENAL TRANSPLANT
  5. LASIX [Suspect]
     Active Substance: FUROSEMIDE
     Indication: OEDEMA
  6. METOLAZONE. [Suspect]
     Active Substance: METOLAZONE
     Indication: OEDEMA
  7. SIMULECT [Concomitant]
     Active Substance: BASILIXIMAB
     Dosage: UNK
     Dates: start: 20081211

REACTIONS (1)
  - Cystitis [Recovered/Resolved]

NARRATIVE: CASE EVENT DATE: 20081222
